FAERS Safety Report 16963418 (Version 1)
Quarter: 2019Q4

REPORT INFORMATION
  Report Type: Spontaneous
  Country: CN (occurrence: CN)
  Receive Date: 20191025
  Receipt Date: 20191025
  Transmission Date: 20200122
  Serious: Yes (Hospitalization, Other)
  Sender: FDA-Public Use
  Company Number: CN-SILVERGATE PHARMACEUTICALS, INC.-2019SIL00056

PATIENT
  Age: 11 Year
  Sex: Male

DRUGS (5)
  1. METHOTREXATE. [Suspect]
     Active Substance: METHOTREXATE
     Dosage: MAINTENANCE; 25 MG/M^2/DAY
     Route: 048
  2. METHOTREXATE. [Suspect]
     Active Substance: METHOTREXATE
     Dosage: 2 G/M^2
     Route: 065
  3. METHOTREXATE. [Suspect]
     Active Substance: METHOTREXATE
     Indication: ACUTE LYMPHOCYTIC LEUKAEMIA
     Dosage: FIRST COURSE; 5 G/M^2
     Route: 065
  4. METHOTREXATE. [Suspect]
     Active Substance: METHOTREXATE
     Dosage: SECOND COURSE; 4 G/M^2
     Route: 065
  5. DASATINIB. [Suspect]
     Active Substance: DASATINIB
     Indication: ACUTE LYMPHOCYTIC LEUKAEMIA
     Route: 065

REACTIONS (8)
  - Haemorrhage intracranial [Recovered/Resolved with Sequelae]
  - Bone marrow failure [Unknown]
  - Drug interaction [Recovered/Resolved]
  - Hepatic function abnormal [Unknown]
  - Mucocutaneous ulceration [Unknown]
  - Hemiplegia [Not Recovered/Not Resolved]
  - Cholecystitis [Recovered/Resolved]
  - Stomatitis [Unknown]
